FAERS Safety Report 17294730 (Version 1)
Quarter: 2020Q1

REPORT INFORMATION
  Report Type: Spontaneous
  Country: US (occurrence: US)
  Receive Date: 20200121
  Receipt Date: 20200121
  Transmission Date: 20200409
  Serious: No
  Sender: FDA-Public Use
  Company Number: US-PFIZER INC-2020023828

PATIENT
  Age: 68 Year
  Sex: Female
  Weight: 56.7 kg

DRUGS (3)
  1. RELPAX [Suspect]
     Active Substance: ELETRIPTAN HYDROBROMIDE
     Indication: MIGRAINE
     Dosage: 40 MG, AS NEEDED(AS NEEDED, DON^T TAKE MORE THAN 2 A WEEK)
  2. AIMOVIG [Suspect]
     Active Substance: ERENUMAB-AOOE
     Indication: MIGRAINE
     Dosage: 140 MG/ML, MONTHLY (TWO SHOTS EACH MONTH)
  3. RELPAX [Suspect]
     Active Substance: ELETRIPTAN HYDROBROMIDE
     Dosage: 40 MG, AS NEEDED(AS NEEDED, DON^T TAKE MORE THAN 2 A WEEK)

REACTIONS (2)
  - Drug ineffective [Unknown]
  - Recalled product administered [Unknown]

NARRATIVE: CASE EVENT DATE: 2019
